FAERS Safety Report 8076869-9 (Version None)
Quarter: 2012Q1

REPORT INFORMATION
  Report Type: 
  Country: None (occurrence: None)
  Receive Date: 20120127
  Receipt Date: 20120119
  Transmission Date: 20120608
  Serious: Yes (Hospitalization, Other)
  Sender: FDA-Public Use
  Company Number: US-MERCK-1109USA00848

PATIENT
  Age: 79 Year
  Sex: Female
  Weight: 64 kg

DRUGS (4)
  1. ASPIRIN [Concomitant]
     Route: 048
  2. CELEBREX [Concomitant]
     Route: 048
     Dates: start: 19960101
  3. VITAMINS (UNSPECIFIED) [Concomitant]
     Route: 048
  4. FOSAMAX [Suspect]
     Indication: OSTEOPOROSIS
     Route: 048
     Dates: start: 20000101, end: 20100101

REACTIONS (43)
  - CERVICAL MYELOPATHY [None]
  - ANGINA PECTORIS [None]
  - CONFUSIONAL STATE [None]
  - GASTROOESOPHAGEAL REFLUX DISEASE [None]
  - FIBULA FRACTURE [None]
  - URINARY INCONTINENCE [None]
  - NEUROLOGICAL SYMPTOM [None]
  - GOUT [None]
  - CARDIOVASCULAR DISORDER [None]
  - CERVICAL SPINAL STENOSIS [None]
  - SPINAL OSTEOARTHRITIS [None]
  - ANXIETY [None]
  - POOR DENTAL CONDITION [None]
  - MACULAR DEGENERATION [None]
  - INTESTINAL OBSTRUCTION [None]
  - ARTERIOSCLEROSIS CORONARY ARTERY [None]
  - FEMUR FRACTURE [None]
  - DRY MOUTH [None]
  - TENDON DISORDER [None]
  - HEAD INJURY [None]
  - HAEMOGLOBIN DECREASED [None]
  - DEPRESSION [None]
  - HUMERUS FRACTURE [None]
  - OSTEOARTHRITIS [None]
  - FALL [None]
  - INCONTINENCE [None]
  - LIMB CRUSHING INJURY [None]
  - CATARACT [None]
  - SPINAL CORD INJURY CERVICAL [None]
  - DRUG HYPERSENSITIVITY [None]
  - FACIAL BONES FRACTURE [None]
  - FRACTURE MALUNION [None]
  - EXCORIATION [None]
  - MORTON'S NEUROMA [None]
  - HEARING IMPAIRED [None]
  - EXOSTOSIS [None]
  - JOINT INJURY [None]
  - SKELETAL INJURY [None]
  - GAIT DISTURBANCE [None]
  - DYSPNOEA EXERTIONAL [None]
  - TOOTH DISORDER [None]
  - POST PROCEDURAL COMPLICATION [None]
  - HYPERTENSION [None]
